FAERS Safety Report 17117868 (Version 1)
Quarter: 2019Q4

REPORT INFORMATION
  Report Type: Other
  Country: GB (occurrence: GB)
  Receive Date: 20191205
  Receipt Date: 20191205
  Transmission Date: 20200122
  Serious: No
  Sender: FDA-Public Use
  Company Number: GB-LEXICON PHARMACEUTICALS, INC-19-1606-01063

PATIENT
  Sex: Female

DRUGS (4)
  1. SOMATULINE [Suspect]
     Active Substance: LANREOTIDE ACETATE
     Indication: NEUROENDOCRINE TUMOUR
     Route: 065
     Dates: start: 20181123
  2. SOMATULINE [Suspect]
     Active Substance: LANREOTIDE ACETATE
     Indication: OFF LABEL USE
  3. XERMELO [Suspect]
     Active Substance: TELOTRISTAT ETHYL
     Indication: NEUROENDOCRINE TUMOUR
     Route: 065
     Dates: start: 20181123
  4. XERMELO [Suspect]
     Active Substance: TELOTRISTAT ETHYL
     Indication: OFF LABEL USE

REACTIONS (2)
  - Adverse event [Unknown]
  - Off label use [Unknown]

NARRATIVE: CASE EVENT DATE: 20181123
